FAERS Safety Report 15565249 (Version 2)
Quarter: 2018Q4

REPORT INFORMATION
  Report Type: Spontaneous
  Country: PL (occurrence: PL)
  Receive Date: 20181030
  Receipt Date: 20181030
  Transmission Date: 20190205
  Serious: Yes (Hospitalization)
  Sender: FDA-Public Use
  Company Number: PHHY2018PL138214

PATIENT
  Age: 45 Year
  Sex: Female

DRUGS (4)
  1. BENZYLPENICILLIN [Suspect]
     Active Substance: PENICILLIN G
     Indication: PRODUCT USED FOR UNKNOWN INDICATION
     Dosage: 24 MIU, QD
     Route: 042
  2. CLINDAMYCIN. [Suspect]
     Active Substance: CLINDAMYCIN
     Indication: PRODUCT USED FOR UNKNOWN INDICATION
     Dosage: 1800 MG, QD
     Route: 042
  3. CLINDAMYCIN. [Suspect]
     Active Substance: CLINDAMYCIN
     Indication: ERYSIPELAS
  4. VANCOMYCIN [Suspect]
     Active Substance: VANCOMYCIN
     Indication: ERYSIPELAS
     Dosage: 2 G, QD (IN 2 DOSES)
     Route: 065

REACTIONS (1)
  - Drug ineffective [Recovered/Resolved]
